FAERS Safety Report 20363128 (Version 1)
Quarter: 2022Q1

REPORT INFORMATION
  Report Type: Spontaneous
  Country: CN (occurrence: CN)
  Receive Date: 20220121
  Receipt Date: 20220121
  Transmission Date: 20220423
  Serious: Yes (Life-Threatening)
  Sender: FDA-Public Use
  Company Number: CN-CELGENE-CHN-20220104222

PATIENT
  Age: 68 Year
  Sex: Male
  Weight: 71 kg

DRUGS (5)
  1. AZACITIDINE [Suspect]
     Active Substance: AZACITIDINE
     Indication: Acute myeloid leukaemia refractory
     Dosage: 75 MILLIGRAM/SQ. METER
     Route: 058
     Dates: start: 20211227, end: 20220102
  2. APG-2575 [Concomitant]
     Active Substance: APG-2575
     Indication: Acute myeloid leukaemia refractory
     Route: 048
     Dates: start: 20211224
  3. APG-2575 [Concomitant]
     Active Substance: APG-2575
     Route: 048
     Dates: start: 20211225
  4. APG-2575 [Concomitant]
     Active Substance: APG-2575
     Route: 048
     Dates: start: 20211226
  5. APG-2575 [Concomitant]
     Active Substance: APG-2575
     Dosage: 600 MILLIGRAM
     Route: 048
     Dates: start: 20211227, end: 20220105

REACTIONS (4)
  - Pneumonia [Not Recovered/Not Resolved]
  - Respiratory failure [Not Recovered/Not Resolved]
  - Cardiac failure [Not Recovered/Not Resolved]
  - Anaemia [Not Recovered/Not Resolved]

NARRATIVE: CASE EVENT DATE: 20220108
